FAERS Safety Report 8028691-7 (Version None)
Quarter: 2012Q1

REPORT INFORMATION
  Report Type: 
  Country: None (occurrence: None)
  Receive Date: 20120106
  Receipt Date: 20120103
  Transmission Date: 20120608
  Serious: Yes (Other)
  Sender: FDA-Public Use
  Company Number: US-ABBOTT-10P-163-0683282-00

PATIENT
  Sex: Female
  Weight: 54.026 kg

DRUGS (10)
  1. MOBIC [Concomitant]
     Indication: RHEUMATOID ARTHRITIS
  2. SINGULAIR [Concomitant]
     Indication: ASTHMA
     Dates: end: 20100401
  3. UNKNOWN MEDICATIONS [Concomitant]
     Indication: OSTEOARTHRITIS
     Dates: end: 20100401
  4. HUMIRA [Suspect]
     Indication: RHEUMATOID ARTHRITIS
     Route: 058
     Dates: start: 20040101, end: 20100401
  5. PREDNISONE TAB [Concomitant]
     Indication: PRODUCT USED FOR UNKNOWN INDICATION
     Dates: start: 20100201, end: 20100401
  6. LISINOPRIL [Concomitant]
     Indication: BLOOD PRESSURE
     Dates: end: 20100401
  7. UNKNOWN MEDICATIONS [Concomitant]
     Indication: ASTHMA
     Dates: start: 20100401
  8. OMEPRAZOLE [Concomitant]
     Indication: GASTROOESOPHAGEAL REFLUX DISEASE
     Dates: end: 20100401
  9. MOBIC [Concomitant]
     Indication: OSTEOARTHRITIS
     Dates: end: 20100401
  10. ACTONEL [Concomitant]
     Indication: OSTEOPOROSIS
     Dates: end: 20100401

REACTIONS (7)
  - FATIGUE [None]
  - WEIGHT DECREASED [None]
  - CHROMATURIA [None]
  - HEPATITIS TOXIC [None]
  - RHEUMATOID ARTHRITIS [None]
  - BRONCHITIS [None]
  - ARTHRALGIA [None]
